FAERS Safety Report 10515878 (Version 2)
Quarter: 2014Q4

REPORT INFORMATION
  Report Type: Spontaneous
  Country: US (occurrence: US)
  Receive Date: 20141014
  Receipt Date: 20141030
  Transmission Date: 20150528
  Serious: Yes (Other)
  Sender: FDA-Public Use
  Company Number: US-PFIZER INC-2014278755

PATIENT
  Age: 4 Year
  Sex: Male

DRUGS (2)
  1. TENEX [Concomitant]
     Active Substance: GUANFACINE HYDROCHLORIDE
     Dosage: 1 MG, QHS
     Route: 048
     Dates: start: 20140909
  2. QUILLIVANT XR [Suspect]
     Active Substance: METHYLPHENIDATE HYDROCHLORIDE
     Dosage: 1 ML, 1X/DAY
     Route: 048
     Dates: start: 20141007, end: 20141008

REACTIONS (10)
  - Tachycardia [Recovered/Resolved]
  - Psychotic behaviour [Recovered/Resolved]
  - Screaming [Recovered/Resolved]
  - Insomnia [Unknown]
  - Affect lability [Recovering/Resolving]
  - Hypersensitivity [Recovering/Resolving]
  - Irritability [Recovering/Resolving]
  - Product use issue [Recovered/Resolved]
  - Abnormal behaviour [Recovered/Resolved]
  - Aggression [Recovered/Resolved]

NARRATIVE: CASE EVENT DATE: 20141007
